FAERS Safety Report 23913647 (Version 1)
Quarter: 2024Q2

REPORT INFORMATION
  Report Type: Spontaneous
  Country: CA (occurrence: CA)
  Receive Date: 20240529
  Receipt Date: 20240529
  Transmission Date: 20240715
  Serious: Yes (Death, Life-Threatening, Hospitalization, Disabling, Congenital Anomaly, Other)
  Sender: FDA-Public Use
  Company Number: CA-HALEON-2175656

PATIENT
  Age: 40 Year
  Sex: Female

DRUGS (185)
  1. CALCIUM CARBONATE [Suspect]
     Active Substance: CALCIUM CARBONATE
     Indication: Product used for unknown indication
     Route: 065
  2. DICLOFENAC DIETHYLAMINE [Suspect]
     Active Substance: DICLOFENAC DIETHYLAMINE
     Indication: Product used for unknown indication
     Route: 065
  3. ADALIMUMAB [Suspect]
     Active Substance: ADALIMUMAB\ISOPROPYL ALCOHOL
     Indication: Rheumatoid arthritis
     Route: 058
  4. ADALIMUMAB [Suspect]
     Active Substance: ADALIMUMAB\ISOPROPYL ALCOHOL
     Indication: Rheumatoid arthritis
     Route: 058
  5. ADALIMUMAB [Suspect]
     Active Substance: ADALIMUMAB\ISOPROPYL ALCOHOL
     Route: 058
  6. CETIRIZINE HYDROCHLORIDE [Suspect]
     Active Substance: CETIRIZINE HYDROCHLORIDE
     Indication: Rheumatoid arthritis
     Route: 065
  7. CETIRIZINE HYDROCHLORIDE [Suspect]
     Active Substance: CETIRIZINE HYDROCHLORIDE
     Route: 048
  8. CETIRIZINE HYDROCHLORIDE [Suspect]
     Active Substance: CETIRIZINE HYDROCHLORIDE
     Route: 065
  9. CETIRIZINE HYDROCHLORIDE [Suspect]
     Active Substance: CETIRIZINE HYDROCHLORIDE
     Route: 048
  10. CETIRIZINE HYDROCHLORIDE [Suspect]
     Active Substance: CETIRIZINE HYDROCHLORIDE
     Route: 065
  11. CETIRIZINE HYDROCHLORIDE [Suspect]
     Active Substance: CETIRIZINE HYDROCHLORIDE
     Route: 048
  12. CETIRIZINE HYDROCHLORIDE [Suspect]
     Active Substance: CETIRIZINE HYDROCHLORIDE
     Route: 065
  13. CETIRIZINE HYDROCHLORIDE [Suspect]
     Active Substance: CETIRIZINE HYDROCHLORIDE
     Route: 048
  14. CETIRIZINE HYDROCHLORIDE [Suspect]
     Active Substance: CETIRIZINE HYDROCHLORIDE
     Route: 065
  15. CETIRIZINE HYDROCHLORIDE [Suspect]
     Active Substance: CETIRIZINE HYDROCHLORIDE
     Route: 065
  16. CETIRIZINE HYDROCHLORIDE [Suspect]
     Active Substance: CETIRIZINE HYDROCHLORIDE
     Route: 048
  17. CETIRIZINE HYDROCHLORIDE [Suspect]
     Active Substance: CETIRIZINE HYDROCHLORIDE
     Route: 048
  18. CETIRIZINE HYDROCHLORIDE [Suspect]
     Active Substance: CETIRIZINE HYDROCHLORIDE
     Route: 048
  19. CHLORHEXIDINE GLUCONATE [Suspect]
     Active Substance: CHLORHEXIDINE GLUCONATE
     Indication: Product used for unknown indication
     Route: 061
  20. CHLORHEXIDINE GLUCONATE [Suspect]
     Active Substance: CHLORHEXIDINE GLUCONATE
     Route: 065
  21. CIMZIA [Suspect]
     Active Substance: CERTOLIZUMAB PEGOL
     Indication: Rheumatoid arthritis
     Route: 058
  22. CIMZIA [Suspect]
     Active Substance: CERTOLIZUMAB PEGOL
     Indication: Psoriasis
  23. CIMZIA [Suspect]
     Active Substance: CERTOLIZUMAB PEGOL
     Indication: Rheumatoid arthritis
     Route: 065
  24. CIMZIA [Suspect]
     Active Substance: CERTOLIZUMAB PEGOL
     Indication: Psoriasis
     Route: 058
  25. CIMZIA [Suspect]
     Active Substance: CERTOLIZUMAB PEGOL
     Route: 058
  26. COSENTYX [Suspect]
     Active Substance: SECUKINUMAB
     Indication: Rheumatoid arthritis
     Route: 065
  27. COSENTYX [Suspect]
     Active Substance: SECUKINUMAB
     Indication: Psoriatic arthropathy
  28. DESOXIMETASONE [Suspect]
     Active Substance: DESOXIMETASONE
     Indication: Rheumatoid arthritis
     Route: 048
  29. DESOXIMETASONE [Suspect]
     Active Substance: DESOXIMETASONE
     Indication: Rheumatoid arthritis
     Dosage: DOSAGE FORM REPORTED AS NOT SPECIFIED
     Route: 048
  30. HYDROXYCHLOROQUINE [Suspect]
     Active Substance: HYDROXYCHLOROQUINE
     Indication: Rheumatoid arthritis
     Route: 065
  31. HYDROXYCHLOROQUINE [Suspect]
     Active Substance: HYDROXYCHLOROQUINE
     Route: 048
  32. HYDROXYCHLOROQUINE [Suspect]
     Active Substance: HYDROXYCHLOROQUINE
     Route: 048
  33. HYDROXYCHLOROQUINE [Suspect]
     Active Substance: HYDROXYCHLOROQUINE
     Route: 065
  34. HYDROXYCHLOROQUINE [Suspect]
     Active Substance: HYDROXYCHLOROQUINE
     Route: 016
  35. HYDROXYCHLOROQUINE [Suspect]
     Active Substance: HYDROXYCHLOROQUINE
     Route: 065
  36. HYDROXYCHLOROQUINE [Suspect]
     Active Substance: HYDROXYCHLOROQUINE
     Route: 065
  37. HYDROXYCHLOROQUINE [Suspect]
     Active Substance: HYDROXYCHLOROQUINE
     Route: 058
  38. HYDROXYCHLOROQUINE [Suspect]
     Active Substance: HYDROXYCHLOROQUINE
     Route: 048
  39. HYDROXYCHLOROQUINE [Suspect]
     Active Substance: HYDROXYCHLOROQUINE
     Route: 065
  40. HYDROXYCHLOROQUINE [Suspect]
     Active Substance: HYDROXYCHLOROQUINE
     Route: 065
  41. HYDROXYCHLOROQUINE [Suspect]
     Active Substance: HYDROXYCHLOROQUINE
     Route: 048
  42. HYDROXYCHLOROQUINE [Suspect]
     Active Substance: HYDROXYCHLOROQUINE
     Route: 065
  43. HYDROXYCHLOROQUINE [Suspect]
     Active Substance: HYDROXYCHLOROQUINE
     Route: 065
  44. HYDROXYCHLOROQUINE [Suspect]
     Active Substance: HYDROXYCHLOROQUINE
     Route: 048
  45. HYDROXYCHLOROQUINE [Suspect]
     Active Substance: HYDROXYCHLOROQUINE
     Route: 065
  46. HYDROXYCHLOROQUINE [Suspect]
     Active Substance: HYDROXYCHLOROQUINE
     Route: 065
  47. HYDROXYCHLOROQUINE [Suspect]
     Active Substance: HYDROXYCHLOROQUINE
     Route: 048
  48. HYDROXYCHLOROQUINE [Suspect]
     Active Substance: HYDROXYCHLOROQUINE
     Route: 048
  49. HYDROXYCHLOROQUINE [Suspect]
     Active Substance: HYDROXYCHLOROQUINE
     Route: 048
  50. HYDROXYCHLOROQUINE [Suspect]
     Active Substance: HYDROXYCHLOROQUINE
     Route: 058
  51. HYDROXYCHLOROQUINE [Suspect]
     Active Substance: HYDROXYCHLOROQUINE
     Route: 065
  52. HYDROXYCHLOROQUINE [Suspect]
     Active Substance: HYDROXYCHLOROQUINE
     Route: 065
  53. HYDROXYCHLOROQUINE [Suspect]
     Active Substance: HYDROXYCHLOROQUINE
     Route: 048
  54. HYDROXYCHLOROQUINE SULFATE [Suspect]
     Active Substance: HYDROXYCHLOROQUINE SULFATE
     Indication: Rheumatoid arthritis
     Route: 065
  55. HYDROXYCHLOROQUINE SULFATE [Suspect]
     Active Substance: HYDROXYCHLOROQUINE SULFATE
     Route: 065
  56. HYDROXYCHLOROQUINE SULFATE [Suspect]
     Active Substance: HYDROXYCHLOROQUINE SULFATE
     Route: 065
  57. HYDROXYCHLOROQUINE SULFATE [Suspect]
     Active Substance: HYDROXYCHLOROQUINE SULFATE
     Route: 048
  58. HYDROXYCHLOROQUINE SULFATE [Suspect]
     Active Substance: HYDROXYCHLOROQUINE SULFATE
     Route: 065
  59. HYDROXYCHLOROQUINE SULFATE [Suspect]
     Active Substance: HYDROXYCHLOROQUINE SULFATE
     Route: 048
  60. HYDROXYCHLOROQUINE SULFATE [Suspect]
     Active Substance: HYDROXYCHLOROQUINE SULFATE
     Route: 065
  61. INFLIXIMAB [Suspect]
     Active Substance: INFLIXIMAB
     Indication: Rheumatoid arthritis
     Dosage: DOSAGE FORM: NOT SPECIFIED
     Route: 040
  62. INFLIXIMAB [Suspect]
     Active Substance: INFLIXIMAB
     Indication: Rheumatoid arthritis
     Route: 065
  63. INFLIXIMAB [Suspect]
     Active Substance: INFLIXIMAB
     Route: 040
  64. INFLIXIMAB [Suspect]
     Active Substance: INFLIXIMAB
     Route: 040
  65. INFLIXIMAB [Suspect]
     Active Substance: INFLIXIMAB
     Route: 040
  66. LAMICTAL [Suspect]
     Active Substance: LAMOTRIGINE
     Indication: Product used for unknown indication
     Route: 048
  67. LAMICTAL [Suspect]
     Active Substance: LAMOTRIGINE
     Indication: Product used for unknown indication
     Route: 048
  68. LAMICTAL [Suspect]
     Active Substance: LAMOTRIGINE
     Route: 048
  69. LAMICTAL [Suspect]
     Active Substance: LAMOTRIGINE
     Route: 048
  70. LAMICTAL [Suspect]
     Active Substance: LAMOTRIGINE
     Route: 048
  71. LAMICTAL [Suspect]
     Active Substance: LAMOTRIGINE
     Route: 048
  72. ACETAMINOPHEN [Suspect]
     Active Substance: ACETAMINOPHEN
     Indication: Rheumatoid arthritis
     Route: 065
  73. ACTEMRA [Suspect]
     Active Substance: TOCILIZUMAB
     Indication: Rheumatoid arthritis
     Route: 058
  74. ACTEMRA [Suspect]
     Active Substance: TOCILIZUMAB
     Route: 040
  75. ACTEMRA [Suspect]
     Active Substance: TOCILIZUMAB
     Route: 065
  76. ACTEMRA [Suspect]
     Active Substance: TOCILIZUMAB
     Route: 040
  77. ACTEMRA [Suspect]
     Active Substance: TOCILIZUMAB
     Route: 040
  78. ACTEMRA [Suspect]
     Active Substance: TOCILIZUMAB
     Route: 040
  79. ACTEMRA [Suspect]
     Active Substance: TOCILIZUMAB
     Route: 065
  80. ACTEMRA [Suspect]
     Active Substance: TOCILIZUMAB
     Route: 061
  81. ACTEMRA [Suspect]
     Active Substance: TOCILIZUMAB
     Route: 058
  82. ACTEMRA [Suspect]
     Active Substance: TOCILIZUMAB
     Route: 040
  83. ACTEMRA [Suspect]
     Active Substance: TOCILIZUMAB
     Route: 040
  84. ACTEMRA [Suspect]
     Active Substance: TOCILIZUMAB
     Route: 016
  85. ACTEMRA [Suspect]
     Active Substance: TOCILIZUMAB
     Route: 058
  86. ACTEMRA [Suspect]
     Active Substance: TOCILIZUMAB
     Route: 040
  87. ACTEMRA [Suspect]
     Active Substance: TOCILIZUMAB
     Route: 065
  88. ACTEMRA [Suspect]
     Active Substance: TOCILIZUMAB
     Route: 040
  89. ACTEMRA [Suspect]
     Active Substance: TOCILIZUMAB
     Route: 058
  90. ACTEMRA [Suspect]
     Active Substance: TOCILIZUMAB
     Route: 058
  91. AIMOVIG [Suspect]
     Active Substance: ERENUMAB-AOOE
     Indication: Migraine
     Route: 065
  92. AIMOVIG [Suspect]
     Active Substance: ERENUMAB-AOOE
     Indication: Migraine
     Route: 065
  93. ALENDRONIC ACID [Suspect]
     Active Substance: ALENDRONIC ACID
     Indication: Rheumatoid arthritis
     Route: 065
  94. ALENDRONIC ACID [Suspect]
     Active Substance: ALENDRONIC ACID
     Route: 048
  95. ALENDRONIC ACID [Suspect]
     Active Substance: ALENDRONIC ACID
     Route: 048
  96. ALENDRONIC ACID [Suspect]
     Active Substance: ALENDRONIC ACID
     Route: 016
  97. ALENDRONATE SODIUM\CHOLECALCIFEROL [Suspect]
     Active Substance: ALENDRONATE SODIUM\CHOLECALCIFEROL
     Indication: Rheumatoid arthritis
     Route: 065
  98. LEFLUNOMIDE [Suspect]
     Active Substance: LEFLUNOMIDE
     Indication: Rheumatoid arthritis
     Route: 065
  99. LEFLUNOMIDE [Suspect]
     Active Substance: LEFLUNOMIDE
     Route: 065
  100. LEFLUNOMIDE [Suspect]
     Active Substance: LEFLUNOMIDE
     Indication: Rheumatoid arthritis
     Route: 048
  101. PREDNISONE [Suspect]
     Active Substance: PREDNISONE
     Indication: Rheumatoid arthritis
     Route: 048
  102. PREDNISONE [Suspect]
     Active Substance: PREDNISONE
     Route: 048
  103. PREDNISONE [Suspect]
     Active Substance: PREDNISONE
     Route: 048
  104. PREDNISONE [Suspect]
     Active Substance: PREDNISONE
     Route: 048
  105. PREDNISONE [Suspect]
     Active Substance: PREDNISONE
     Route: 048
  106. PREDNISONE [Suspect]
     Active Substance: PREDNISONE
     Indication: Rheumatoid arthritis
     Route: 048
  107. APREMILAST [Suspect]
     Active Substance: APREMILAST
     Indication: Rheumatoid arthritis
     Route: 065
  108. ARAVA [Suspect]
     Active Substance: LEFLUNOMIDE
     Indication: Rheumatoid arthritis
     Route: 065
  109. ARAVA [Suspect]
     Active Substance: LEFLUNOMIDE
     Route: 048
  110. ARAVA [Suspect]
     Active Substance: LEFLUNOMIDE
     Indication: Rheumatoid arthritis
     Route: 048
  111. ATOMOXETINE [Suspect]
     Active Substance: ATOMOXETINE\ATOMOXETINE HYDROCHLORIDE
     Indication: Migraine
     Route: 065
  112. AZATHIOPRINE SODIUM [Suspect]
     Active Substance: AZATHIOPRINE SODIUM
     Indication: Product used for unknown indication
     Route: 065
  113. BERINERT [Suspect]
     Active Substance: HUMAN C1-ESTERASE INHIBITOR
     Indication: Product used for unknown indication
     Route: 065
  114. BOTULINUM TOXIN TYPE A [Suspect]
     Active Substance: BOTULINUM TOXIN TYPE A
     Indication: Product used for unknown indication
     Dosage: DOSAGE FORM REPORTED AS POWDER FOR SOLUTION
     Route: 065
  115. BUTRANS [Suspect]
     Active Substance: BUPRENORPHINE
     Indication: Product used for unknown indication
     Route: 065
  116. CALCIUM ASCORBATE [Suspect]
     Active Substance: CALCIUM ASCORBATE
     Indication: Product used for unknown indication
     Route: 065
  117. CALCIUM CARBONATE [Suspect]
     Active Substance: CALCIUM CARBONATE
     Indication: Product used for unknown indication
     Route: 065
  118. CALCIUM GLUBIONATE [Suspect]
     Active Substance: CALCIUM GLUBIONATE
     Indication: Product used for unknown indication
     Route: 016
  119. CANDESARTAN [Suspect]
     Active Substance: CANDESARTAN
     Indication: Migraine
     Route: 048
  120. CELEBREX [Suspect]
     Active Substance: CELECOXIB
     Indication: Product used for unknown indication
     Route: 048
  121. CELEBREX [Suspect]
     Active Substance: CELECOXIB
     Indication: Product used for unknown indication
     Route: 048
  122. CERTOLIZUMAB PEGOL [Suspect]
     Active Substance: CERTOLIZUMAB PEGOL
     Indication: Rheumatoid arthritis
     Route: 065
  123. CERTOLIZUMAB PEGOL [Suspect]
     Active Substance: CERTOLIZUMAB PEGOL
     Route: 065
  124. CERTOLIZUMAB PEGOL [Suspect]
     Active Substance: CERTOLIZUMAB PEGOL
     Indication: Rheumatoid arthritis
     Route: 058
  125. CERTOLIZUMAB PEGOL [Suspect]
     Active Substance: CERTOLIZUMAB PEGOL
     Route: 058
  126. DICLOFENAC SODIUM [Suspect]
     Active Substance: DICLOFENAC\DICLOFENAC SODIUM
     Indication: Product used for unknown indication
     Route: 065
  127. DICLOFENAC SODIUM [Suspect]
     Active Substance: DICLOFENAC\DICLOFENAC SODIUM
     Route: 065
  128. DICLOFENAC SODIUM [Suspect]
     Active Substance: DICLOFENAC\DICLOFENAC SODIUM
     Dosage: DOSAGE FORM REPORTED AS NOT SPECIFIED
     Route: 058
  129. DOMPERIDONE MALEATE [Suspect]
     Active Substance: DOMPERIDONE MALEATE
     Indication: Product used for unknown indication
     Route: 065
  130. ENBREL [Suspect]
     Active Substance: BENZYL ALCOHOL\ETANERCEPT
     Indication: Rheumatoid arthritis
     Route: 058
  131. ENBREL [Suspect]
     Active Substance: BENZYL ALCOHOL\ETANERCEPT
     Route: 058
  132. ENBREL [Suspect]
     Active Substance: BENZYL ALCOHOL\ETANERCEPT
     Route: 058
  133. ENBREL [Suspect]
     Active Substance: BENZYL ALCOHOL\ETANERCEPT
     Route: 065
  134. ENBREL [Suspect]
     Active Substance: BENZYL ALCOHOL\ETANERCEPT
     Route: 058
  135. ENBREL [Suspect]
     Active Substance: BENZYL ALCOHOL\ETANERCEPT
     Route: 058
  136. ENBREL [Suspect]
     Active Substance: BENZYL ALCOHOL\ETANERCEPT
     Route: 065
  137. ERELZI [Suspect]
     Active Substance: ETANERCEPT-SZZS
     Indication: Rheumatoid arthritis
     Dosage: DOSAGE FORM REPORTED AS NOT SPECIFIED
     Route: 048
  138. FLUMETHASONE [Suspect]
     Active Substance: FLUMETHASONE
     Indication: Product used for unknown indication
     Route: 065
  139. FLUMETHASONE PIVALATE [Suspect]
     Active Substance: FLUMETHASONE PIVALATE
     Indication: Product used for unknown indication
     Route: 065
  140. FOLIC ACID [Suspect]
     Active Substance: FOLIC ACID
     Indication: Rheumatoid arthritis
     Route: 065
  141. FOLIC ACID [Suspect]
     Active Substance: FOLIC ACID
     Route: 065
  142. FOLIC ACID [Suspect]
     Active Substance: FOLIC ACID
     Route: 065
  143. FOLIC ACID [Suspect]
     Active Substance: FOLIC ACID
     Route: 065
  144. FOLIC ACID [Suspect]
     Active Substance: FOLIC ACID
     Route: 048
  145. FOLIC ACID [Suspect]
     Active Substance: FOLIC ACID
     Route: 065
  146. FOLIC ACID [Suspect]
     Active Substance: FOLIC ACID
     Route: 058
  147. FOLIC ACID [Suspect]
     Active Substance: FOLIC ACID
     Route: 065
  148. FOLIC ACID [Suspect]
     Active Substance: FOLIC ACID
     Route: 065
  149. FOLIC ACID [Suspect]
     Active Substance: FOLIC ACID
     Route: 065
  150. FOLIC ACID [Suspect]
     Active Substance: FOLIC ACID
     Route: 065
  151. FOLIC ACID [Suspect]
     Active Substance: FOLIC ACID
     Dosage: DOSAGE FORM REPORTED AS NOT SPECIFIED
     Route: 065
  152. FOSAMAX [Suspect]
     Active Substance: ALENDRONATE SODIUM
     Indication: Rheumatoid arthritis
     Route: 065
  153. FOSAMAX [Suspect]
     Active Substance: ALENDRONATE SODIUM
     Route: 058
  154. FOSAMAX [Suspect]
     Active Substance: ALENDRONATE SODIUM
     Route: 016
  155. FOSAMAX [Suspect]
     Active Substance: ALENDRONATE SODIUM
     Route: 048
  156. FOSAMAX [Suspect]
     Active Substance: ALENDRONATE SODIUM
     Indication: Rheumatoid arthritis
     Route: 065
  157. GOLD [Suspect]
     Active Substance: GOLD
     Indication: Product used for unknown indication
     Route: 065
  158. GOLD SODIUM THIOMALATE [Suspect]
     Active Substance: GOLD SODIUM THIOMALATE
     Indication: Product used for unknown indication
     Route: 065
  159. GOLIMUMAB [Suspect]
     Active Substance: GOLIMUMAB
     Indication: Rheumatoid arthritis
     Route: 065
  160. HUMIRA [Suspect]
     Active Substance: ADALIMUMAB
     Indication: Rheumatoid arthritis
     Route: 065
  161. HUMIRA [Suspect]
     Active Substance: ADALIMUMAB
     Route: 058
  162. HUMIRA [Suspect]
     Active Substance: ADALIMUMAB
     Route: 058
  163. HUMIRA [Suspect]
     Active Substance: ADALIMUMAB
     Route: 058
  164. HUMIRA [Suspect]
     Active Substance: ADALIMUMAB
     Indication: Rheumatoid arthritis
     Dosage: DOSAGE FORM REPORTED AS SOLUTION SUBCUTANEOUS
     Route: 058
  165. HYDROCORTISONE [Suspect]
     Active Substance: HYDROCORTISONE
     Indication: Product used for unknown indication
     Dosage: DOSAGE FORM: NOT SPECIFIED
     Route: 065
  166. RITUXIMAB [Suspect]
     Active Substance: RITUXIMAB
     Indication: Rheumatoid arthritis
     Route: 065
  167. RITUXIMAB [Suspect]
     Active Substance: RITUXIMAB
     Route: 065
  168. RITUXIMAB [Suspect]
     Active Substance: RITUXIMAB
     Route: 040
  169. RITUXIMAB [Suspect]
     Active Substance: RITUXIMAB
     Route: 065
  170. RITUXIMAB [Suspect]
     Active Substance: RITUXIMAB
     Route: 065
  171. RITUXIMAB [Suspect]
     Active Substance: RITUXIMAB
     Route: 040
  172. RITUXIMAB [Suspect]
     Active Substance: RITUXIMAB
     Route: 058
  173. RITUXIMAB [Suspect]
     Active Substance: RITUXIMAB
     Route: 065
  174. RITUXIMAB [Suspect]
     Active Substance: RITUXIMAB
     Route: 058
  175. RITUXIMAB [Suspect]
     Active Substance: RITUXIMAB
     Route: 058
  176. RITUXIMAB [Suspect]
     Active Substance: RITUXIMAB
     Route: 043
  177. RITUXIMAB [Suspect]
     Active Substance: RITUXIMAB
     Route: 065
  178. RITUXIMAB [Suspect]
     Active Substance: RITUXIMAB
     Route: 040
  179. RITUXIMAB [Suspect]
     Active Substance: RITUXIMAB
     Route: 040
  180. RITUXIMAB [Suspect]
     Active Substance: RITUXIMAB
     Route: 016
  181. RITUXIMAB [Suspect]
     Active Substance: RITUXIMAB
     Route: 040
  182. RITUXIMAB [Suspect]
     Active Substance: RITUXIMAB
     Route: 040
  183. RITUXIMAB [Suspect]
     Active Substance: RITUXIMAB
     Route: 043
  184. RITUXIMAB [Suspect]
     Active Substance: RITUXIMAB
     Route: 016
  185. RITUXIMAB [Suspect]
     Active Substance: RITUXIMAB
     Route: 016

REACTIONS (32)
  - Exposure during pregnancy [Fatal]
  - Arthralgia [Fatal]
  - Abdominal distension [Fatal]
  - Alopecia [Fatal]
  - Coeliac disease [Fatal]
  - Anti-cyclic citrullinated peptide antibody positive [Fatal]
  - Arthropathy [Fatal]
  - Abdominal discomfort [Fatal]
  - Adverse reaction [Fatal]
  - Blood cholesterol increased [Fatal]
  - Condition aggravated [Fatal]
  - Drug intolerance [Fatal]
  - Drug-induced liver injury [Fatal]
  - Dyspepsia [Fatal]
  - Fatigue [Fatal]
  - Gastrointestinal disorder [Fatal]
  - General physical health deterioration [Fatal]
  - Glossodynia [Fatal]
  - Grip strength decreased [Fatal]
  - Hand deformity [Fatal]
  - Headache [Fatal]
  - Hepatic enzyme increased [Fatal]
  - Hypersensitivity [Fatal]
  - Hypertension [Fatal]
  - Insomnia [Fatal]
  - Joint swelling [Fatal]
  - Live birth [Fatal]
  - Malaise [Fatal]
  - Musculoskeletal stiffness [Fatal]
  - Nail disorder [Fatal]
  - Off label use [Fatal]
  - Product label confusion [Fatal]
